FAERS Safety Report 21309361 (Version 1)
Quarter: 2022Q3

REPORT INFORMATION
  Report Type: Spontaneous
  Country: US (occurrence: US)
  Receive Date: 20220908
  Receipt Date: 20220908
  Transmission Date: 20221027
  Serious: No
  Sender: FDA-Public Use
  Company Number: US-BRAINTREE LABORATORIES, INC.-2021BTE00743

PATIENT
  Age: 57 Year
  Sex: Female
  Weight: 77.564 kg

DRUGS (9)
  1. SUPREP BOWEL PREP [Suspect]
     Active Substance: MAGNESIUM SULFATE\POTASSIUM SULFATE\SODIUM SULFATE
     Indication: Colonoscopy
     Dosage: 1 X 6 OZ. BOTTLE, 1X
     Route: 048
     Dates: start: 20210907
  2. HUMIRA [Concomitant]
     Active Substance: ADALIMUMAB
  3. HYDROXYCHLOROQUINE [Concomitant]
     Active Substance: HYDROXYCHLOROQUINE
     Dosage: 200 MG, 2X/DAY
  4. VITAMIN D (RX) [Concomitant]
  5. DULOXETINE [Concomitant]
     Active Substance: DULOXETINE
  6. HYDROCHLOROTHIAZIDE [Concomitant]
     Active Substance: HYDROCHLOROTHIAZIDE
  7. MONTELUKAST [Concomitant]
     Active Substance: MONTELUKAST SODIUM
  8. ALBUTEROL [Concomitant]
     Active Substance: ALBUTEROL
     Dosage: UNK, AS NEEDED
  9. SYNTHROID [Concomitant]
     Active Substance: LEVOTHYROXINE SODIUM

REACTIONS (3)
  - Dry mouth [Not Recovered/Not Resolved]
  - Vomiting [Not Recovered/Not Resolved]
  - Nausea [Not Recovered/Not Resolved]

NARRATIVE: CASE EVENT DATE: 20210907
